FAERS Safety Report 14826877 (Version 1)
Quarter: 2018Q2

REPORT INFORMATION
  Report Type: Spontaneous
  Country: US (occurrence: US)
  Receive Date: 20180405
  Receipt Date: 20180405
  Transmission Date: 20180711
  Serious: No
  Sender: FDA-Public Use
  Company Number: None

PATIENT
  Age: 73 Year
  Sex: Female

DRUGS (6)
  1. ALLOPURINOL 300MG [Concomitant]
     Active Substance: ALLOPURINOL
  2. METOPROLOL TARTRATE 50MG [Concomitant]
     Active Substance: METOPROLOL TARTRATE
  3. LEVOTHYROXINE 125MCG [Concomitant]
     Active Substance: LEVOTHYROXINE SODIUM
  4. MONTELUKAST [Concomitant]
     Active Substance: MONTELUKAST SODIUM
  5. BUPROPION SR [Suspect]
     Active Substance: BUPROPION HYDROCHLORIDE
     Route: 048
  6. CITALOPRAM [Concomitant]
     Active Substance: CITALOPRAM HYDROBROMIDE

REACTIONS (3)
  - Dyspnoea [None]
  - Pruritus [None]
  - Nervousness [None]

NARRATIVE: CASE EVENT DATE: 20180309
